FAERS Safety Report 4757620-4 (Version None)
Quarter: 2005Q3

REPORT INFORMATION
  Report Type: 
  Country: None (occurrence: None)
  Receive Date: 20050831
  Receipt Date: 20050823
  Transmission Date: 20060218
  Serious: Yes (Death)
  Sender: FDA-Public Use
  Company Number: US-SANOFI-SYNTHELABO-A03200502643

PATIENT
  Sex: Female

DRUGS (2)
  1. PLAVIX [Suspect]
     Indication: DRUG USE FOR UNKNOWN INDICATION
     Dosage: UNK
     Route: 048
  2. COUMADIN [Concomitant]
     Dosage: UNK
     Route: 065

REACTIONS (1)
  - CARDIAC DISORDER [None]
